FAERS Safety Report 8190446-0 (Version None)
Quarter: 2012Q1

REPORT INFORMATION
  Report Type: 
  Country: None (occurrence: None)
  Receive Date: 20120307
  Receipt Date: 20120307
  Transmission Date: 20120608
  Serious: Yes (Other)
  Sender: FDA-Public Use
  Company Number: AU-PFIZER INC-2012051392

PATIENT
  Sex: Female

DRUGS (2)
  1. LYRICA [Suspect]
     Dosage: 150 MG
  2. OXYCONTIN [Concomitant]

REACTIONS (5)
  - NEURALGIA [None]
  - NAUSEA [None]
  - NIGHTMARE [None]
  - DYSPEPSIA [None]
  - HYPERHIDROSIS [None]
